FAERS Safety Report 5175960-4 (Version None)
Quarter: 2006Q4

REPORT INFORMATION
  Report Type: 
  Country: None (occurrence: None)
  Receive Date: 20061215
  Receipt Date: 20061204
  Transmission Date: 20070319
  Serious: Yes (Other)
  Sender: FDA-Public Use
  Company Number: US-ROCHE-473950

PATIENT
  Sex: Female

DRUGS (2)
  1. TORADOL [Suspect]
     Indication: DRUG USE FOR UNKNOWN INDICATION
     Route: 048
  2. ZITHROMAX [Concomitant]
     Dosage: DRUG NAME REPORTED AS ^Z-PACK^
     Route: 048

REACTIONS (2)
  - HOMICIDAL IDEATION [None]
  - PSYCHOTIC DISORDER [None]
